FAERS Safety Report 13651268 (Version 2)
Quarter: 2017Q2

REPORT INFORMATION
  Report Type: Spontaneous
  Country: US (occurrence: US)
  Receive Date: 20170614
  Receipt Date: 20170619
  Transmission Date: 20170830
  Serious: No
  Sender: FDA-Public Use
  Company Number: US-GLAXOSMITHKLINE-US2017GSK091243

PATIENT
  Sex: Female

DRUGS (1)
  1. COREG CR [Suspect]
     Active Substance: CARVEDILOL PHOSPHATE
     Indication: CARDIAC FAILURE CONGESTIVE
     Dosage: 80 MG, UNK
     Dates: start: 20160404

REACTIONS (4)
  - Hypertension [Unknown]
  - Electrocardiogram abnormal [Unknown]
  - Drug dose omission [Unknown]
  - Inability to afford medication [Unknown]
